FAERS Safety Report 9699052 (Version 1)
Quarter: 2013Q4

REPORT INFORMATION
  Report Type: Spontaneous
  Country: US (occurrence: US)
  Receive Date: 20131120
  Receipt Date: 20131120
  Transmission Date: 20140711
  Serious: Yes (Other)
  Sender: FDA-Public Use
  Company Number: US-WATSON-2013-20767

PATIENT
  Age: 59 Year
  Sex: Female

DRUGS (1)
  1. HYDROXYCHLOROQUINE SULFATE (WATSON LABORATORIES) [Suspect]
     Indication: SARCOIDOSIS
     Dosage: 200 MG, BID
     Route: 065

REACTIONS (1)
  - Maculopathy [Unknown]
